FAERS Safety Report 24297773 (Version 1)
Quarter: 2024Q3

REPORT INFORMATION
  Report Type: Report from Study
  Country: UA (occurrence: UA)
  Receive Date: 20240909
  Receipt Date: 20240909
  Transmission Date: 20241016
  Serious: Yes (Death, Other)
  Sender: PFIZER
  Company Number: UA-TAKEDA-2024TUS088457

PATIENT
  Age: 30 Year
  Sex: Male

DRUGS (1)
  1. ADCETRIS [Suspect]
     Active Substance: BRENTUXIMAB VEDOTIN
     Indication: Hodgkin^s disease refractory
     Dosage: 357 MILLIGRAM, Q3WEEKS
     Route: 042
     Dates: start: 20240328, end: 20240903

REACTIONS (1)
  - Death [Fatal]
